FAERS Safety Report 4995568-0 (Version None)
Quarter: 2006Q2

REPORT INFORMATION
  Report Type: 
  Country: None (occurrence: None)
  Receive Date: 20060504
  Receipt Date: 20060419
  Transmission Date: 20061013
  Serious: Yes (Death)
  Sender: FDA-Public Use
  Company Number: 2006-DE-02003GD

PATIENT
  Sex: 0

DRUGS (2)
  1. MORPHINE [Suspect]
  2. COCAINE (COCAINE) [Suspect]

REACTIONS (2)
  - DRUG ABUSER [None]
  - DRUG SCREEN POSITIVE [None]
